FAERS Safety Report 6193572-0 (Version None)
Quarter: 2009Q2

REPORT INFORMATION
  Report Type: 
  Country: None (occurrence: None)
  Receive Date: 20090512
  Receipt Date: 20090505
  Transmission Date: 20091009
  Serious: Yes (Hospitalization)
  Sender: FDA-Public Use
  Company Number: CHPA2009US11063

PATIENT
  Age: 66 Year
  Sex: Female
  Weight: 73.9 kg

DRUGS (1)
  1. GAS-X EXTRA STRENGTH         (SIMETHICONE) SOFT GELATIN CAPSULE [Suspect]
     Indication: FLATULENCE
     Dosage: 250 MG, TID, ORAL ; 625 MG, IN A DAY, ORAL
     Route: 048

REACTIONS (2)
  - CONSTIPATION [None]
  - OVERDOSE [None]
